FAERS Safety Report 13406734 (Version 1)
Quarter: 2017Q2

REPORT INFORMATION
  Report Type: Spontaneous
  Country: US (occurrence: US)
  Receive Date: 20170405
  Receipt Date: 20170405
  Transmission Date: 20170830
  Serious: No
  Sender: FDA-Public Use
  Company Number: US-ARBOR PHARMACEUTICALS, LLC-US-2016ARB001798

PATIENT

DRUGS (3)
  1. SKLICE [Suspect]
     Active Substance: IVERMECTIN
     Dosage: UNK
     Dates: start: 20160911, end: 20160911
  2. SKLICE [Suspect]
     Active Substance: IVERMECTIN
     Dosage: UNK
     Dates: start: 2016
  3. SKLICE [Suspect]
     Active Substance: IVERMECTIN
     Indication: LICE INFESTATION
     Dosage: 0.5 %, ONE TIME APPLICATION
     Route: 061
     Dates: start: 201604

REACTIONS (2)
  - Pruritus [Unknown]
  - Drug ineffective [Unknown]

NARRATIVE: CASE EVENT DATE: 201604
